FAERS Safety Report 19110570 (Version 1)
Quarter: 2021Q2

REPORT INFORMATION
  Report Type: Spontaneous
  Country: US (occurrence: US)
  Receive Date: 20210409
  Receipt Date: 20210409
  Transmission Date: 20210717
  Serious: No
  Sender: FDA-Public Use
  Company Number: US-SA-2021SA114846

PATIENT
  Age: 64 Year
  Sex: Female

DRUGS (1)
  1. DUPIXENT [Suspect]
     Active Substance: DUPILUMAB
     Indication: ASTHMA
     Dosage: UNK
     Route: 058
     Dates: start: 20201113

REACTIONS (5)
  - Neck pain [Unknown]
  - Headache [Unknown]
  - Condition aggravated [Unknown]
  - Pain [Unknown]
  - Discomfort [Unknown]

NARRATIVE: CASE EVENT DATE: 202101
